FAERS Safety Report 4468878-3 (Version None)
Quarter: 2004Q4

REPORT INFORMATION
  Report Type: 
  Country: None (occurrence: None)
  Receive Date: 20041008
  Receipt Date: 20040930
  Transmission Date: 20050328
  Serious: Yes (Hospitalization)
  Sender: FDA-Public Use
  Company Number: US-JNJFOC-20041000744

PATIENT
  Sex: Male

DRUGS (3)
  1. REMICADE [Suspect]
     Route: 042
  2. REMICADE [Suspect]
     Indication: CROHN'S DISEASE
     Route: 042
  3. STEROIDS [Concomitant]
     Indication: PREMEDICATION

REACTIONS (4)
  - BALANCE DISORDER [None]
  - DIFFICULTY IN WALKING [None]
  - INFUSION RELATED REACTION [None]
  - NEUROMYOPATHY [None]
